FAERS Safety Report 7490835-3 (Version None)
Quarter: 2011Q2

REPORT INFORMATION
  Report Type: 
  Country: None (occurrence: None)
  Receive Date: 20110519
  Receipt Date: 20110513
  Transmission Date: 20111010
  Serious: Yes (Hospitalization)
  Sender: FDA-Public Use
  Company Number: US-SANOFI-AVENTIS-2011SA030011

PATIENT
  Age: 78 Year
  Sex: Female

DRUGS (2)
  1. ASPIRIN [Concomitant]
  2. MULTAQ [Suspect]
     Indication: ATRIAL FIBRILLATION
     Route: 048
     Dates: start: 20110506, end: 20110508

REACTIONS (5)
  - ATRIAL FIBRILLATION [None]
  - OEDEMA PERIPHERAL [None]
  - FATIGUE [None]
  - POLLAKIURIA [None]
  - HEART RATE INCREASED [None]
